FAERS Safety Report 5474251-1 (Version None)
Quarter: 2007Q4

REPORT INFORMATION
  Report Type: 
  Country: None (occurrence: None)
  Receive Date: 20071002
  Receipt Date: 20070629
  Transmission Date: 20080405
  Serious: No
  Sender: FDA-Public Use
  Company Number: US-ASTRAZENECA-2007UW14470

PATIENT
  Age: 54 Year
  Sex: Female
  Weight: 68 kg

DRUGS (5)
  1. ARIMIDEX [Suspect]
     Indication: BREAST CANCER
     Route: 048
     Dates: start: 20040101
  2. FOSAMAX [Concomitant]
  3. CALCIUM [Concomitant]
  4. GLUCOSAMINE [Concomitant]
  5. FISH OIL [Concomitant]

REACTIONS (6)
  - ACNE [None]
  - ALOPECIA [None]
  - ARTHRALGIA [None]
  - HYPERSOMNIA [None]
  - INSOMNIA [None]
  - VULVOVAGINAL DRYNESS [None]
